FAERS Safety Report 23404238 (Version 1)
Quarter: 2024Q1

REPORT INFORMATION
  Report Type: Other
  Country: US (occurrence: None)
  Receive Date: 20240116
  Receipt Date: 20240116
  Transmission Date: 20240410
  Serious: Yes (Hospitalization, Other)
  Sender: FDA-Public Use
  Company Number: US-ROCHE-3488505

PATIENT
  Age: 64 Year
  Sex: Female

DRUGS (16)
  1. ENSPRYNG [Suspect]
     Active Substance: SATRALIZUMAB-MWGE
     Indication: Neuromyelitis optica spectrum disorder
     Dosage: FREQUENCY: AT WEEKS 0, 2 AND 4, MAINTENANCE DOSE: 120 MG EVERY 4 WEEKS
     Route: 058
  2. RITUXAN [Suspect]
     Active Substance: RITUXIMAB
     Indication: Neuromyelitis optica spectrum disorder
     Route: 065
  3. FLEXERIL [Concomitant]
     Active Substance: CYCLOBENZAPRINE HYDROCHLORIDE
  4. DICLOFENAC SODIUM [Concomitant]
     Active Substance: DICLOFENAC\DICLOFENAC SODIUM
  5. CYMBALTA [Concomitant]
     Active Substance: DULOXETINE HYDROCHLORIDE
  6. RETACRIT [Concomitant]
     Active Substance: EPOETIN ALFA-EPBX
  7. ERGOCALCIFEROL [Concomitant]
     Active Substance: ERGOCALCIFEROL
  8. CYCLOBENZAPRINE [Concomitant]
     Active Substance: CYCLOBENZAPRINE
  9. DULOXETINE [Concomitant]
     Active Substance: DULOXETINE
  10. ERGOCALCIFEROL [Concomitant]
     Active Substance: ERGOCALCIFEROL
  11. FUROSEMIDE [Concomitant]
     Active Substance: FUROSEMIDE
  12. HYDROXYCHLOROQUINE [Concomitant]
     Active Substance: HYDROXYCHLOROQUINE
  13. MONTELUKAST [Concomitant]
     Active Substance: MONTELUKAST SODIUM
  14. ACETAMINOPHEN\HYDROCODONE [Concomitant]
     Active Substance: ACETAMINOPHEN\HYDROCODONE
  15. EPOETIN ALFA-EPBX [Concomitant]
     Active Substance: EPOETIN ALFA-EPBX
  16. HYDROCORTISONE [Concomitant]
     Active Substance: HYDROCORTISONE

REACTIONS (22)
  - Klebsiella urinary tract infection [Unknown]
  - Anal cancer recurrent [Unknown]
  - Muscle tightness [Not Recovered/Not Resolved]
  - Myalgia [Not Recovered/Not Resolved]
  - Sensory loss [Unknown]
  - Sleep disorder [Unknown]
  - Constipation [Unknown]
  - Ill-defined disorder [Unknown]
  - Muscular weakness [Unknown]
  - Arthralgia [Unknown]
  - Back pain [Unknown]
  - Muscle spasms [Unknown]
  - Sjogren^s syndrome [Unknown]
  - Rash [Unknown]
  - Fatigue [Unknown]
  - Post procedural haemorrhage [Unknown]
  - Neuralgia [Unknown]
  - Cervical dysplasia [Unknown]
  - Oedema peripheral [Unknown]
  - Syringomyelia [Unknown]
  - Abdominal distension [Unknown]
  - Off label use [Unknown]

NARRATIVE: CASE EVENT DATE: 20170101
